FAERS Safety Report 6424971-7 (Version None)
Quarter: 2009Q4

REPORT INFORMATION
  Report Type: 
  Country: None (occurrence: None)
  Receive Date: 20091103
  Receipt Date: 20091026
  Transmission Date: 20100525
  Serious: Yes (Hospitalization)
  Sender: FDA-Public Use
  Company Number: JP-WYE-H10004409

PATIENT
  Sex: Female

DRUGS (6)
  1. ANCARON [Suspect]
     Indication: VENTRICULAR TACHYCARDIA
     Route: 048
     Dates: start: 20071207, end: 20090422
  2. LANIRAPID [Concomitant]
     Indication: ATRIAL FIBRILLATION
     Dosage: 1 UNIT EVERY 1 DAY
     Route: 048
     Dates: start: 20071208
  3. LENDORMIN [Concomitant]
     Indication: INSOMNIA
     Dosage: 1 UNIT EVERY 1 DAY
     Route: 048
     Dates: start: 20071212
  4. MEXITIL [Concomitant]
     Indication: VENTRICULAR TACHYCARDIA
     Dosage: 3 UNIT EVERY 1 DAY
     Route: 048
     Dates: start: 20071224
  5. WARFARIN SODIUM [Concomitant]
     Indication: ATRIAL FIBRILLATION
     Route: 048
     Dates: start: 20071208, end: 20090422
  6. RENIVACE [Concomitant]
     Indication: HYPERTENSION
     Dosage: 1 UNIT EVERY 1 DAY
     Route: 048
     Dates: start: 20090125

REACTIONS (1)
  - LUNG DISORDER [None]
